FAERS Safety Report 19704734 (Version 2)
Quarter: 2022Q1

REPORT INFORMATION
  Report Type: Spontaneous
  Country: US (occurrence: US)
  Receive Date: 20210816
  Receipt Date: 20220120
  Transmission Date: 20220423
  Serious: No
  Sender: FDA-Public Use
  Company Number: US-PFIZER INC-2019033938

PATIENT
  Age: 5 Year
  Sex: Male
  Weight: 58.97 kg

DRUGS (5)
  1. GENOTROPIN [Suspect]
     Active Substance: SOMATROPIN
     Indication: Pituitary hypoplasia
     Dosage: 1.2 MG
  2. GENOTROPIN [Suspect]
     Active Substance: SOMATROPIN
     Indication: Optic nerve hypoplasia
     Dosage: 1.2 (UNKNOWN UNIT), 1X/DAY (INJECTION EVERY NIGHT)
  3. GENOTROPIN [Suspect]
     Active Substance: SOMATROPIN
     Indication: Obesity
     Dosage: 1.2 MG, DAILY (7 DAYS A WEEK)
     Dates: start: 20190128
  4. GENOTROPIN [Suspect]
     Active Substance: SOMATROPIN
     Indication: Adrenal insufficiency
  5. GENOTROPIN [Suspect]
     Active Substance: SOMATROPIN
     Indication: Growth hormone deficiency

REACTIONS (3)
  - Expired device used [Unknown]
  - Device information output issue [Unknown]
  - Drug dose omission by device [Unknown]
